FAERS Safety Report 6071379-2 (Version None)
Quarter: 2009Q1

REPORT INFORMATION
  Report Type: 
  Country: None (occurrence: None)
  Receive Date: 20090204
  Receipt Date: 20090123
  Transmission Date: 20090719
  Serious: Yes (Hospitalization)
  Sender: FDA-Public Use
  Company Number: FABR-1000620

PATIENT
  Age: 57 Year
  Sex: Male

DRUGS (3)
  1. FABRAZYME [Suspect]
     Indication: FABRY'S DISEASE
     Dosage: 1 MG/KG, Q2W, INTRAVENOUS
     Route: 042
     Dates: start: 20080221, end: 20080401
  2. FABRAZYME [Suspect]
     Indication: FABRY'S DISEASE
     Dosage: 1 MG/KG, Q2W, INTRAVENOUS
     Route: 042
     Dates: start: 20081201
  3. UNSPECIFIED IMMUNOSUPPRESSION [Concomitant]

REACTIONS (4)
  - CHILLS [None]
  - PNEUMONIA [None]
  - RENAL TRANSPLANT [None]
  - WHITE BLOOD CELL COUNT DECREASED [None]
